FAERS Safety Report 6215711-5 (Version None)
Quarter: 2009Q2

REPORT INFORMATION
  Report Type: 
  Country: None (occurrence: None)
  Receive Date: 20090605
  Receipt Date: 20090526
  Transmission Date: 20091009
  Serious: Yes (Other)
  Sender: FDA-Public Use
  Company Number: US-BAYER-200917675NA

PATIENT
  Age: 75 Year
  Sex: Male
  Weight: 67 kg

DRUGS (8)
  1. CIPRO [Suspect]
     Indication: PNEUMONIA
     Dosage: TOTAL DAILY DOSE: 1000 MG  UNIT DOSE: 500 MG
     Route: 048
     Dates: start: 20090224, end: 20090317
  2. PREDNISONE [Concomitant]
     Dosage: TOTAL DAILY DOSE: 20 MG
  3. SPIRIVA [Concomitant]
  4. ALBUTEROL [Concomitant]
  5. TORSEMIDE [Concomitant]
  6. PROTONIX [Concomitant]
  7. FLOVENT [Concomitant]
     Route: 055
  8. FERROUS SULFATE TAB [Concomitant]

REACTIONS (1)
  - TENDON RUPTURE [None]
